FAERS Safety Report 10908701 (Version 1)
Quarter: 2015Q1

REPORT INFORMATION
  Report Type: Spontaneous
  Country: US (occurrence: US)
  Receive Date: 20150312
  Receipt Date: 20150312
  Transmission Date: 20150721
  Serious: Yes (Other)
  Sender: FDA-Public Use
  Company Number: US-TEVA-546412USA

PATIENT
  Sex: Male

DRUGS (1)
  1. CLONIDINE. [Suspect]
     Active Substance: CLONIDINE
     Route: 062
     Dates: start: 20150302

REACTIONS (5)
  - Drug prescribing error [Unknown]
  - Sedation [Unknown]
  - Incorrect dose administered [Unknown]
  - Monoplegia [Recovered/Resolved]
  - Drug administered to patient of inappropriate age [Unknown]
